FAERS Safety Report 24450491 (Version 2)
Quarter: 2024Q4

REPORT INFORMATION
  Report Type: Spontaneous
  Country: FI (occurrence: FI)
  Receive Date: 20241017
  Receipt Date: 20241112
  Transmission Date: 20250115
  Serious: Yes (Other)
  Sender: UCB
  Company Number: FI-UCBSA-2024052855

PATIENT
  Sex: Female

DRUGS (1)
  1. BIMZELX [Suspect]
     Active Substance: BIMEKIZUMAB-BKZX
     Indication: Psoriasis
     Dosage: 320 MILLIGRAM, EV 4 WEEKS
     Route: 058
     Dates: start: 202402, end: 202406

REACTIONS (4)
  - Breast abscess [Unknown]
  - Abscess drainage [Unknown]
  - Candida infection [Unknown]
  - Arthropathy [Unknown]

NARRATIVE: CASE EVENT DATE: 20240101
